FAERS Safety Report 5281305-1 (Version None)
Quarter: 2007Q1

REPORT INFORMATION
  Report Type: 
  Country: None (occurrence: None)
  Receive Date: 20061221
  Receipt Date: 20060321
  Transmission Date: 20070707
  Serious: Yes (Hospitalization)
  Sender: FDA-Public Use
  Company Number: 2006UW03223

PATIENT
  Age: 44 Year
  Sex: Female

DRUGS (2)
  1. SENSORCAINE [Suspect]
     Dosage: 2 DF, ED
     Route: 008
  2. FENTANYL [Suspect]

REACTIONS (1)
  - CAUDA EQUINA SYNDROME [None]
